FAERS Safety Report 9367283 (Version 2)
Quarter: 2013Q2

REPORT INFORMATION
  Report Type: Spontaneous
  Country: US (occurrence: US)
  Receive Date: 20130625
  Receipt Date: 20130626
  Transmission Date: 20140414
  Serious: No
  Sender: FDA-Public Use
  Company Number: US-BAYER-2013-077476

PATIENT
  Age: 88 Year
  Sex: Female
  Weight: 58.5 kg

DRUGS (5)
  1. ALEVE LIQUID GELS [Suspect]
     Dosage: 1 DF, TID
     Route: 048
     Dates: start: 201306
  2. ALEVE GELCAPS [Suspect]
     Dosage: 1 DF, TID
  3. ALEVE GELCAPS [Suspect]
     Dosage: MORE THAN 3 DF,UNK
     Dates: start: 201306
  4. VITAMIN D [Concomitant]
  5. BAYER ASPIRIN REGIMEN ADULT LOW STRENGTH [Concomitant]

REACTIONS (3)
  - Foreign body [Recovered/Resolved]
  - Foreign body [Recovered/Resolved]
  - Incorrect dose administered [None]
